FAERS Safety Report 8765445 (Version 6)
Quarter: 2013Q1

REPORT INFORMATION
  Report Type: Spontaneous
  Country: US (occurrence: US)
  Receive Date: 20120831
  Receipt Date: 20130125
  Transmission Date: 20140127
  Serious: Yes (Other)
  Sender: FDA-Public Use
  Company Number: US-PFIZER INC-2012212470

PATIENT
  Age: 61 Year
  Sex: Male
  Weight: 88.44 kg

DRUGS (9)
  1. LYRICA [Suspect]
     Dosage: 150 MG, UNK
     Dates: start: 2009
  2. LYRICA [Suspect]
     Dosage: 450 MG, DAILY
  3. XALATAN [Suspect]
     Dosage: UNK
  4. DILANTIN [Suspect]
     Indication: GRAND MAL CONVULSION
     Dosage: 200 MG, 2X/DAY
     Route: 048
     Dates: start: 1977
  5. DILANTIN [Suspect]
     Dosage: 100 MG, UNK
  6. LAMICTAL [Suspect]
     Dosage: 225 MG, 2X/DAY
     Dates: start: 2007
  7. CILOSTAZOL [Concomitant]
     Indication: BLOOD CHOLESTEROL INCREASED
     Dosage: 100 MG, 2X/DAY
  8. SIMVASTATIN [Concomitant]
     Indication: ARTERIOSCLEROSIS
     Dosage: 40 MG, 1X/DAY
  9. PLAVIX [Concomitant]
     Indication: ANTICOAGULANT THERAPY
     Dosage: 75 MG, 1X/DAY

REACTIONS (1)
  - Convulsion [Unknown]
